FAERS Safety Report 6745884-7 (Version None)
Quarter: 2010Q2

REPORT INFORMATION
  Report Type: 
  Country: None (occurrence: None)
  Receive Date: 20100528
  Receipt Date: 20100528
  Transmission Date: 20101027
  Serious: Yes (Other)
  Sender: FDA-Public Use
  Company Number: None

PATIENT
  Age: 7 Year
  Sex: Female
  Weight: 18.1439 kg

DRUGS (1)
  1. CHILDREN'S MOTRIN [Suspect]
     Indication: RASH
     Dosage: 1.5 TSP A FEW TIMES PO
     Route: 048
     Dates: start: 20100101, end: 20100527

REACTIONS (2)
  - PRODUCT QUALITY ISSUE [None]
  - RASH GENERALISED [None]
